FAERS Safety Report 14306533 (Version 4)
Quarter: 2018Q1

REPORT INFORMATION
  Report Type: Spontaneous
  Country: FR (occurrence: FR)
  Receive Date: 20171220
  Receipt Date: 20180118
  Transmission Date: 20180509
  Serious: Yes (Hospitalization)
  Sender: FDA-Public Use
  Company Number: FR-ROCHE-2039708

PATIENT
  Age: 41 Year
  Sex: Female
  Weight: 55 kg

DRUGS (45)
  1. RITUXIMAB. [Suspect]
     Active Substance: RITUXIMAB
     Route: 065
     Dates: start: 20150618
  2. GEMCITABINE [Suspect]
     Active Substance: GEMCITABINE\GEMCITABINE HYDROCHLORIDE
     Route: 065
     Dates: start: 20150618
  3. OXALIPLATIN. [Suspect]
     Active Substance: OXALIPLATIN
     Route: 065
     Dates: start: 20150507
  4. OXALIPLATIN. [Suspect]
     Active Substance: OXALIPLATIN
     Route: 065
     Dates: start: 20150618
  5. CELLTOP [Suspect]
     Active Substance: ETOPOSIDE
     Indication: LYMPHOMA
     Route: 048
     Dates: start: 20151019, end: 20151102
  6. PLAVIX [Concomitant]
     Active Substance: CLOPIDOGREL BISULFATE
     Indication: CARDIAC FAILURE
     Route: 065
     Dates: start: 201508
  7. IVABRADINE HYDROCHLORIDE [Concomitant]
     Active Substance: IVABRADINE HYDROCHLORIDE
     Indication: CARDIAC FAILURE
     Route: 065
     Dates: start: 20150925
  8. RITUXIMAB. [Suspect]
     Active Substance: RITUXIMAB
     Indication: LYMPHOMA
     Route: 065
  9. OXALIPLATIN. [Suspect]
     Active Substance: OXALIPLATIN
     Route: 065
  10. DAKLINZA [Suspect]
     Active Substance: DACLATASVIR
     Indication: HEPATITIS C
     Route: 048
     Dates: start: 20150203, end: 20150428
  11. PRAVASTATIN. [Concomitant]
     Active Substance: PRAVASTATIN
     Indication: CARDIAC FAILURE
     Route: 065
  12. LASILIX [Concomitant]
     Active Substance: FUROSEMIDE
     Route: 065
     Dates: start: 20150813
  13. RITUXIMAB. [Suspect]
     Active Substance: RITUXIMAB
     Route: 065
     Dates: start: 20150719
  14. RITUXIMAB. [Suspect]
     Active Substance: RITUXIMAB
     Route: 065
     Dates: start: 20150521
  15. PERINDOPRIL [Concomitant]
     Active Substance: PERINDOPRIL
     Indication: HYPERTENSION
     Route: 065
     Dates: end: 20151126
  16. DELURSAN [Concomitant]
     Active Substance: URSODIOL
     Route: 065
  17. RITUXIMAB. [Suspect]
     Active Substance: RITUXIMAB
     Route: 065
  18. RITUXIMAB. [Suspect]
     Active Substance: RITUXIMAB
     Route: 065
     Dates: start: 20150825, end: 20150825
  19. GEMCITABINE [Suspect]
     Active Substance: GEMCITABINE\GEMCITABINE HYDROCHLORIDE
     Route: 065
  20. ENDOXAN [Concomitant]
     Active Substance: CYCLOPHOSPHAMIDE
     Indication: LYMPHOMA
     Route: 065
     Dates: start: 20151126
  21. PENTAMIDINE ISETIONATE [Concomitant]
     Active Substance: PENTAMIDINE ISETHIONATE
     Route: 065
     Dates: start: 201509
  22. ASPEGIC [Concomitant]
     Active Substance: ASPIRIN DL-LYSINE
     Route: 065
  23. GEMCITABINE [Suspect]
     Active Substance: GEMCITABINE\GEMCITABINE HYDROCHLORIDE
     Route: 065
     Dates: start: 20150825, end: 20150825
  24. GEMCITABINE [Suspect]
     Active Substance: GEMCITABINE\GEMCITABINE HYDROCHLORIDE
     Route: 065
     Dates: start: 20150719
  25. GEMCITABINE [Suspect]
     Active Substance: GEMCITABINE\GEMCITABINE HYDROCHLORIDE
     Route: 065
     Dates: start: 20150521
  26. OXALIPLATIN. [Suspect]
     Active Substance: OXALIPLATIN
     Route: 065
     Dates: start: 20150825, end: 20150825
  27. BRILIQUE [Concomitant]
     Active Substance: TICAGRELOR
     Indication: CARDIAC FAILURE
     Route: 065
     Dates: start: 20150812
  28. KAYEXALATE [Concomitant]
     Active Substance: SODIUM POLYSTYRENE SULFONATE
     Route: 065
     Dates: start: 20150727
  29. RITUXIMAB. [Suspect]
     Active Substance: RITUXIMAB
     Route: 065
     Dates: start: 20150908, end: 20150908
  30. GEMCITABINE [Suspect]
     Active Substance: GEMCITABINE\GEMCITABINE HYDROCHLORIDE
     Indication: LYMPHOMA
     Route: 065
  31. GEMCITABINE [Suspect]
     Active Substance: GEMCITABINE\GEMCITABINE HYDROCHLORIDE
     Route: 065
     Dates: start: 20150908, end: 20150908
  32. CLOPIDOGREL [Concomitant]
     Active Substance: CLOPIDOGREL BISULFATE
     Indication: CARDIAC FAILURE
     Route: 065
     Dates: start: 20150811, end: 20150811
  33. NEORAL [Concomitant]
     Active Substance: CYCLOSPORINE
     Indication: IMMUNOSUPPRESSION
     Route: 065
     Dates: start: 1986
  34. SOLUPRED (FRANCE) [Concomitant]
     Active Substance: PREDNISOLONE
     Route: 065
  35. RIBAVIRIN. [Suspect]
     Active Substance: RIBAVIRIN
     Indication: HEPATITIS C
     Route: 048
     Dates: start: 20150203, end: 20150428
  36. OXALIPLATIN. [Suspect]
     Active Substance: OXALIPLATIN
     Indication: LYMPHOMA
     Route: 065
  37. OXALIPLATIN. [Suspect]
     Active Substance: OXALIPLATIN
     Route: 065
     Dates: start: 20150719
  38. OXALIPLATIN. [Suspect]
     Active Substance: OXALIPLATIN
     Route: 065
     Dates: start: 20150521
  39. VIREAD [Suspect]
     Active Substance: TENOFOVIR DISOPROXIL FUMARATE
     Indication: HEPATITIS B
     Route: 048
     Dates: start: 20120516
  40. OMEPRAZOLE. [Concomitant]
     Active Substance: OMEPRAZOLE
     Route: 065
  41. RITUXIMAB. [Suspect]
     Active Substance: RITUXIMAB
     Route: 065
     Dates: start: 20150507
  42. GEMCITABINE [Suspect]
     Active Substance: GEMCITABINE\GEMCITABINE HYDROCHLORIDE
     Route: 065
     Dates: start: 20150507
  43. OXALIPLATIN. [Suspect]
     Active Substance: OXALIPLATIN
     Route: 065
     Dates: start: 20150908, end: 20150908
  44. SOVALDI [Suspect]
     Active Substance: SOFOSBUVIR
     Indication: HEPATITIS C
     Route: 048
     Dates: start: 20150203, end: 20150428
  45. GRANOCYTE [Concomitant]
     Active Substance: LENOGRASTIM
     Indication: NEUTROPENIA
     Route: 065
     Dates: start: 20151102, end: 20151102

REACTIONS (4)
  - Anaemia [Unknown]
  - Neutropenia [Recovered/Resolved]
  - Diffuse large B-cell lymphoma recurrent [Not Recovered/Not Resolved]
  - Left ventricular failure [Not Recovered/Not Resolved]

NARRATIVE: CASE EVENT DATE: 2015
